FAERS Safety Report 7297817-5 (Version None)
Quarter: 2011Q1

REPORT INFORMATION
  Report Type: 
  Country: None (occurrence: None)
  Receive Date: 20110217
  Receipt Date: 20110204
  Transmission Date: 20110831
  Serious: Yes (Other)
  Sender: FDA-Public Use
  Company Number: JP-JNJFOC-20110203490

PATIENT
  Sex: Female

DRUGS (2)
  1. FINIBAX [Suspect]
     Indication: INFECTION
     Route: 041
  2. FINIBAX [Suspect]
     Indication: DISSEMINATED INTRAVASCULAR COAGULATION
     Route: 041

REACTIONS (1)
  - JAUNDICE [None]
